FAERS Safety Report 5757425-1 (Version None)
Quarter: 2008Q2

REPORT INFORMATION
  Report Type: 
  Country: None (occurrence: None)
  Receive Date: 20080603
  Receipt Date: 20080507
  Transmission Date: 20081010
  Serious: No
  Sender: FDA-Public Use
  Company Number: US-BOEHRINGER INGELHEIM GMBH, GERMANY-2008-BP-07292BP

PATIENT
  Age: 73 Year
  Sex: Female

DRUGS (4)
  1. SPIRIVA [Suspect]
  2. ACCUPRIL [Concomitant]
  3. ZYRTEC [Concomitant]
  4. ALBUTEROL [Concomitant]
     Route: 055

REACTIONS (2)
  - VISION BLURRED [None]
  - VISUAL DISTURBANCE [None]
